FAERS Safety Report 18943946 (Version 1)
Quarter: 2021Q1

REPORT INFORMATION
  Report Type: Spontaneous
  Country: DK (occurrence: DK)
  Receive Date: 20210226
  Receipt Date: 20210226
  Transmission Date: 20210420
  Serious: Yes (Life-Threatening, Hospitalization, Other)
  Sender: FDA-Public Use
  Company Number: DK-B.I. PHARMACEUTICALS,INC./RIDGEFIELD-2021-BI-085250

PATIENT
  Age: 77 Year
  Sex: Male

DRUGS (5)
  1. ACETYLSALICYLSYRE TEVA [Concomitant]
     Indication: THROMBOSIS PROPHYLAXIS
     Dates: start: 20121024
  2. METFORMIN AUROBINDO [Concomitant]
     Active Substance: METFORMIN HYDROCHLORIDE
     Indication: DIABETES MELLITUS
     Dates: start: 20210211
  3. SIMVASTATIN HEXAL [Concomitant]
     Active Substance: SIMVASTATIN
     Indication: HYPERCHOLESTEROLAEMIA
     Dates: start: 20110318
  4. BLOXAZOC [Concomitant]
     Active Substance: METOPROLOL SUCCINATE
     Indication: BLOOD PRESSURE MEASUREMENT
     Dates: start: 20110112
  5. JARDIANCE [Suspect]
     Active Substance: EMPAGLIFLOZIN
     Indication: DIABETES MELLITUS
     Dosage: STRENGTH: 10 MG.
     Route: 048
     Dates: start: 20210202, end: 20210210

REACTIONS (1)
  - Diabetic ketoacidosis [Recovered/Resolved]

NARRATIVE: CASE EVENT DATE: 20210207
